FAERS Safety Report 9401069 (Version 3)
Quarter: 2013Q3

REPORT INFORMATION
  Report Type: Spontaneous
  Country: US (occurrence: US)
  Receive Date: 20130715
  Receipt Date: 20130903
  Transmission Date: 20140515
  Serious: No
  Sender: FDA-Public Use
  Company Number: US-PFIZER INC-2013205670

PATIENT
  Age: 73 Year
  Sex: Male
  Weight: 97.05 kg

DRUGS (3)
  1. ADVIL PM [Suspect]
     Indication: PAIN IN EXTREMITY
     Dosage: UNK, ONCE AT NIGHT
     Route: 048
     Dates: start: 20130710, end: 20130711
  2. ADVIL PM [Suspect]
     Indication: OSTEOARTHRITIS
  3. ADVIL PM [Suspect]
     Indication: INSOMNIA

REACTIONS (9)
  - Drug ineffective [Unknown]
  - Limb discomfort [Recovered/Resolved]
  - Hunger [Recovered/Resolved]
  - Increased appetite [Recovered/Resolved]
  - Restlessness [Recovered/Resolved]
  - Energy increased [Recovered/Resolved]
  - Hypersensitivity [Recovered/Resolved]
  - Fatigue [Recovered/Resolved]
  - Diarrhoea [Recovered/Resolved]
